FAERS Safety Report 6417245-1 (Version None)
Quarter: 2009Q4

REPORT INFORMATION
  Report Type: 
  Country: None (occurrence: None)
  Receive Date: 20091026
  Receipt Date: 20091019
  Transmission Date: 20100525
  Serious: Yes (Hospitalization)
  Sender: FDA-Public Use
  Company Number: 409997

PATIENT
  Age: 25 Year
  Sex: Male

DRUGS (3)
  1. METHOTREXATE [Suspect]
     Indication: CROHN'S DISEASE
     Dosage: 25 MG, 1 WEEK, INTRAMUSCULAR
     Route: 030
  2. REMICADE [Suspect]
     Indication: CROHN'S DISEASE
     Dosage: 5 MG/KG
     Dates: start: 20041201, end: 20080501
  3. PREDNISOLONE [Concomitant]

REACTIONS (3)
  - BONE MARROW FAILURE [None]
  - IMMUNOSUPPRESSION [None]
  - MENINGITIS LISTERIA [None]
